FAERS Safety Report 9602903 (Version 2)
Quarter: 2013Q4

REPORT INFORMATION
  Report Type: Report from Study
  Country: JP (occurrence: JP)
  Receive Date: 20131007
  Receipt Date: 20131016
  Transmission Date: 20140711
  Serious: Yes (Hospitalization)
  Sender: FDA-Public Use
  Company Number: JP-CELGENEUS-087-21660-13094612

PATIENT
  Age: 77 Year
  Sex: Male
  Weight: 65 kg

DRUGS (1)
  1. ABRAXANE [Suspect]
     Indication: GASTRIC CANCER
     Dosage: 447 MILLIGRAM
     Route: 041
     Dates: start: 20130920, end: 20130920

REACTIONS (1)
  - Emphysematous cholecystitis [Not Recovered/Not Resolved]
